FAERS Safety Report 13400630 (Version 2)
Quarter: 2017Q2

REPORT INFORMATION
  Report Type: Spontaneous
  Country: DE (occurrence: DE)
  Receive Date: 20170404
  Receipt Date: 20170421
  Transmission Date: 20170830
  Serious: Yes (Other)
  Sender: FDA-Public Use
  Company Number: DE-ALKABELLO-2017AA001171

PATIENT
  Sex: Male
  Weight: 80 kg

DRUGS (3)
  1. SYMBICORT [Suspect]
     Active Substance: BUDESONIDE\FORMOTEROL FUMARATE DIHYDRATE
     Indication: ASTHMA
     Route: 055
     Dates: start: 2004
  2. ACARIZAX 12 SQ-HDM LYOPHILISAT ZUM EINNEHMEN [Suspect]
     Active Substance: DERMATOPHAGOIDES FARINAE\DERMATOPHAGOIDES PTERONYSSINUS
     Indication: ASTHMA
     Dosage: DOSE UNIT:12 SQ-HOUSE DUST MITE
     Dates: start: 20160311, end: 20160509
  3. ACARIZAX 12 SQ-HDM LYOPHILISAT ZUM EINNEHMEN [Suspect]
     Active Substance: DERMATOPHAGOIDES FARINAE\DERMATOPHAGOIDES PTERONYSSINUS
     Indication: RHINITIS ALLERGIC
     Dosage: DOSE UNIT:12 SQ-HOUSE DUST MITE
     Dates: start: 20160311, end: 20160509

REACTIONS (1)
  - Type 1 diabetes mellitus [Not Recovered/Not Resolved]

NARRATIVE: CASE EVENT DATE: 2016
